FAERS Safety Report 9399836 (Version 1)
Quarter: 2013Q3

REPORT INFORMATION
  Report Type: Spontaneous
  Country: AT (occurrence: AT)
  Receive Date: 20130715
  Receipt Date: 20130715
  Transmission Date: 20140515
  Serious: Yes (Other)
  Sender: FDA-Public Use
  Company Number: PHHY2013AT066775

PATIENT
  Sex: Female
  Weight: 65 kg

DRUGS (6)
  1. LETROZOLE [Suspect]
     Dosage: UNK UKN, UNK
     Dates: start: 20090806, end: 20110329
  2. ZOMETA [Suspect]
     Dosage: MONTHLY
     Dates: start: 20090806, end: 20090819
  3. ZOMETA [Suspect]
     Dosage: 3-MONTHLY
     Dates: start: 20110819, end: 20121109
  4. ANASTROZOLE [Suspect]
     Dosage: UNK UKN, UNK
     Dates: start: 20090806, end: 20110329
  5. TAXOL [Suspect]
     Dosage: UNK UKN, UNK
  6. FULVESTRANT [Concomitant]
     Dosage: UNK UKN, UNK

REACTIONS (8)
  - Neuropathy peripheral [Unknown]
  - Metastases to bone [Not Recovered/Not Resolved]
  - Metastases to liver [Not Recovered/Not Resolved]
  - Nail dystrophy [Unknown]
  - Ulcer [Unknown]
  - Toxicity to various agents [Unknown]
  - Dysgeusia [Unknown]
  - Fatigue [Unknown]
